FAERS Safety Report 9517973 (Version 3)
Quarter: 2019Q2

REPORT INFORMATION
  Report Type: Spontaneous
  Country: US (occurrence: US)
  Receive Date: 20130912
  Receipt Date: 20190614
  Transmission Date: 20190711
  Serious: Yes (Other)
  Sender: FDA-Public Use
  Company Number: US-PFIZER INC-2013261627

PATIENT
  Age: 61 Year
  Sex: Male

DRUGS (5)
  1. NEURONTIN [Suspect]
     Active Substance: GABAPENTIN
     Dosage: UNK
  2. PERCOCET [Concomitant]
     Active Substance: ACETAMINOPHEN\OXYCODONE HYDROCHLORIDE
     Dosage: UNK, 1X/DAY
  3. LIPITOR [Suspect]
     Active Substance: ATORVASTATIN CALCIUM
     Indication: TYPE V HYPERLIPIDAEMIA
  4. LYRICA [Suspect]
     Active Substance: PREGABALIN
     Indication: MYELITIS
     Dosage: 100 MG, 4X/DAY
  5. LIPITOR [Suspect]
     Active Substance: ATORVASTATIN CALCIUM
     Indication: BLOOD CHOLESTEROL INCREASED
     Dosage: 10 MG, DAILY
     Route: 048

REACTIONS (5)
  - Musculoskeletal stiffness [Unknown]
  - Pain [Unknown]
  - Disturbance in attention [Unknown]
  - Hypoacusis [Unknown]
  - Pain in extremity [Unknown]
